FAERS Safety Report 12647289 (Version 2)
Quarter: 2016Q3

REPORT INFORMATION
  Report Type: Report from Study
  Country: US (occurrence: US)
  Receive Date: 20160812
  Receipt Date: 20160915
  Transmission Date: 20161109
  Serious: Yes (Other)
  Sender: FDA-Public Use
  Company Number: US-PURDUE-USA-2016-0132814

PATIENT
  Sex: Female
  Weight: 90.7 kg

DRUGS (3)
  1. OXYCONTIN [Suspect]
     Active Substance: OXYCODONE HYDROCHLORIDE
     Indication: OSTEOARTHRITIS
     Dosage: UNK
     Route: 048
     Dates: start: 2003
  2. OXYCONTIN [Suspect]
     Active Substance: OXYCODONE HYDROCHLORIDE
     Indication: SPINAL DISORDER
  3. OXYCONTIN [Suspect]
     Active Substance: OXYCODONE HYDROCHLORIDE
     Indication: INTERVERTEBRAL DISC DEGENERATION
     Dosage: 40 MG, TID
     Route: 048

REACTIONS (2)
  - Off label use [Not Recovered/Not Resolved]
  - Spinal operation [Unknown]

NARRATIVE: CASE EVENT DATE: 2015
